FAERS Safety Report 4343729-6 (Version None)
Quarter: 2004Q2

REPORT INFORMATION
  Report Type: 
  Country: None (occurrence: None)
  Receive Date: 20040422
  Receipt Date: 20040412
  Transmission Date: 20050107
  Serious: Yes (Other)
  Sender: FDA-Public Use
  Company Number: JP-BRISTOL-MYERS SQUIBB COMPANY-12558136

PATIENT
  Age: 77 Year
  Sex: Female

DRUGS (4)
  1. ETOPOSIDE [Suspect]
     Indication: NON-HODGKIN'S LYMPHOMA
     Dosage: ^100 MG/BODY^
  2. ACLARUBICIN HCL [Suspect]
     Indication: NON-HODGKIN'S LYMPHOMA
     Dosage: ^20 MG/BODY^
  3. ENOCITABINE [Suspect]
     Indication: NON-HODGKIN'S LYMPHOMA
     Dosage: ^250 MG/BODY^
  4. PREDNISOLONE [Suspect]
     Indication: NON-HODGKIN'S LYMPHOMA
     Dosage: ^25 MG/BODY^

REACTIONS (1)
  - TUMOUR LYSIS SYNDROME [None]
